FAERS Safety Report 17173639 (Version 2)
Quarter: 2020Q1

REPORT INFORMATION
  Report Type: Other
  Country: SE (occurrence: SE)
  Receive Date: 20191219
  Receipt Date: 20200220
  Transmission Date: 20200409
  Serious: Yes (Other)
  Sender: FDA-Public Use
  Company Number: SE-GE HEALTHCARE LIFE SCIENCES-2019CSU006369

PATIENT

DRUGS (2)
  1. VISIPAQUE [Suspect]
     Active Substance: IODIXANOL
     Indication: PRODUCT USED FOR UNKNOWN INDICATION
  2. VISIPAQUE [Suspect]
     Active Substance: IODIXANOL
     Indication: X-RAY
     Dosage: 11 ML (ALSO REPORTED AS 5 ML/KG), ONCE
     Route: 048

REACTIONS (2)
  - Condition aggravated [Not Recovered/Not Resolved]
  - Hypothyroidism [Not Recovered/Not Resolved]

NARRATIVE: CASE EVENT DATE: 20140926
